FAERS Safety Report 4449922-6 (Version None)
Quarter: 2004Q3

REPORT INFORMATION
  Report Type: 
  Country: None (occurrence: None)
  Receive Date: 20040915
  Receipt Date: 20040831
  Transmission Date: 20050211
  Serious: Yes (Congenital Anomaly)
  Sender: FDA-Public Use
  Company Number: US-GLAXOSMITHKLINE-A0525375A

PATIENT
  Sex: Male
  Weight: 3.2 kg

DRUGS (2)
  1. LAMICTAL [Suspect]
     Dosage: 200MG PER DAY
  2. PREVACID [Concomitant]

REACTIONS (5)
  - CONGENITAL ATRIAL SEPTAL DEFECT [None]
  - CONGENITAL VENTRICULAR SEPTAL DEFECT [None]
  - DRUG EXPOSURE DURING PREGNANCY [None]
  - DYSPNOEA [None]
  - LUNG DISORDER [None]
